FAERS Safety Report 7217197-0 (Version None)
Quarter: 2011Q1

REPORT INFORMATION
  Report Type: 
  Country: None (occurrence: None)
  Receive Date: 20110110
  Receipt Date: 20110105
  Transmission Date: 20110831
  Serious: Yes (Hospitalization)
  Sender: FDA-Public Use
  Company Number: US-BRISTOL-MYERS SQUIBB COMPANY-15473283

PATIENT
  Age: 54 Year
  Sex: Female
  Weight: 106 kg

DRUGS (2)
  1. CISPLATIN [Suspect]
     Indication: CERVIX CARCINOMA
     Dates: start: 20101227, end: 20101227
  2. ERBITUX [Suspect]
     Indication: CERVIX CARCINOMA
     Dates: start: 20101227, end: 20101227

REACTIONS (1)
  - CEREBRAL ISCHAEMIA [None]
